FAERS Safety Report 21858967 (Version 2)
Quarter: 2023Q1

REPORT INFORMATION
  Report Type: Report from Study
  Country: RU (occurrence: RU)
  Receive Date: 20230113
  Receipt Date: 20230214
  Transmission Date: 20230418
  Serious: Yes (Other)
  Sender: FDA-Public Use
  Company Number: RU-002147023-NVSC2023RU005978

PATIENT
  Sex: Female

DRUGS (4)
  1. RIBOCICLIB SUCCINATE [Suspect]
     Active Substance: RIBOCICLIB SUCCINATE
     Indication: Product used for unknown indication
     Dosage: 600 MG (ON DAYS 1-21, CYCLE OF 28 DAYS)
     Route: 048
     Dates: start: 202107, end: 202211
  2. FULVESTRANT [Concomitant]
     Active Substance: FULVESTRANT
     Indication: Product used for unknown indication
     Dosage: 500 MG (1 TIME / 28 DAYS)
     Route: 065
     Dates: start: 202107
  3. VEROKLAST [Concomitant]
     Indication: Product used for unknown indication
     Dosage: 4 MG (1 TIME / 28 DAYS)
     Route: 041
     Dates: start: 202107
  4. CHLORMADINONE ACETATE\ETHINYL ESTRADIOL [Concomitant]
     Active Substance: CHLORMADINONE ACETATE\ETHINYL ESTRADIOL
     Indication: Product used for unknown indication
     Dosage: 4 MG
     Route: 041
     Dates: start: 202107

REACTIONS (4)
  - Metastases to liver [Unknown]
  - Bone formation increased [Unknown]
  - Fibrosis [Recovering/Resolving]
  - Pleural effusion [Unknown]

NARRATIVE: CASE EVENT DATE: 20210901
